FAERS Safety Report 24347395 (Version 2)
Quarter: 2025Q1

REPORT INFORMATION
  Report Type: Report from Study
  Country: US (occurrence: US)
  Receive Date: 20240922
  Receipt Date: 20250103
  Transmission Date: 20250409
  Serious: Yes (Hospitalization, Other)
  Sender: UCB
  Company Number: US-UCBSA-2024009693

PATIENT
  Age: 3 Year
  Sex: Female
  Weight: 13.2 kg

DRUGS (23)
  1. FINTEPLA [Suspect]
     Active Substance: FENFLURAMINE
     Indication: Severe myoclonic epilepsy of infancy
     Dosage: 1 ML IN MORNING 2 ML IN EVENING
     Dates: start: 20220922
  2. FINTEPLA [Suspect]
     Active Substance: FENFLURAMINE
     Dosage: 1 ML IN MORNING 2 ML IN EVENING
     Dates: start: 20220922
  3. FINTEPLA [Suspect]
     Active Substance: FENFLURAMINE
  4. FINTEPLA [Suspect]
     Active Substance: FENFLURAMINE
     Route: 048
  5. FINTEPLA [Suspect]
     Active Substance: FENFLURAMINE
     Dosage: 1ML IN THE MORNING AND 2ML IN THE EVENING
  6. FINTEPLA [Suspect]
     Active Substance: FENFLURAMINE
  7. VALPROIC ACID [Suspect]
     Active Substance: VALPROIC ACID
     Indication: Product used for unknown indication
  8. VALPROIC ACID [Suspect]
     Active Substance: VALPROIC ACID
  9. EPIDIOLEX [Suspect]
     Active Substance: CANNABIDIOL
     Indication: Product used for unknown indication
  10. EPIDIOLEX [Suspect]
     Active Substance: CANNABIDIOL
  11. CEPHALEXIN [Concomitant]
     Active Substance: CEPHALEXIN
     Indication: Product used for unknown indication
     Dosage: 4 MILLILITER, 3X/DAY (TID)
     Route: 048
  12. ZYRTEC [Concomitant]
     Active Substance: CETIRIZINE HYDROCHLORIDE
     Indication: Product used for unknown indication
     Dosage: 5 MILLIGRAM, ONCE DAILY (QD)
  13. DIASTAT [Concomitant]
     Active Substance: DIAZEPAM
     Indication: Seizure
     Route: 054
  14. VALIUM [Concomitant]
     Active Substance: DIAZEPAM
     Indication: Pyrexia
     Dosage: 2 MILLIGRAM, 3X/DAY (TID)
  15. VALIUM [Concomitant]
     Active Substance: DIAZEPAM
     Indication: Severe myoclonic epilepsy of infancy
  16. DEPAKENE [Concomitant]
     Active Substance: VALPROIC ACID
     Indication: Severe myoclonic epilepsy of infancy
     Dosage: 3.5 MILLILITER, 3X/DAY (TID)
  17. DEPAKENE [Concomitant]
     Active Substance: VALPROIC ACID
  18. DIACOMIT [Concomitant]
     Active Substance: STIRIPENTOL
     Indication: Severe myoclonic epilepsy of infancy
  19. MIDAZOLAM [Concomitant]
     Active Substance: MIDAZOLAM
     Indication: Seizure
     Route: 045
  20. ONFI [Concomitant]
     Active Substance: CLOBAZAM
     Indication: Severe myoclonic epilepsy of infancy
     Dosage: 5 MILLIGRAM, ONCE DAILY (QD)
  21. CARNITOR [Concomitant]
     Active Substance: LEVOCARNITINE
     Indication: Severe myoclonic epilepsy of infancy
     Dosage: 5 MILLILITER, 2X/DAY (BID)
  22. ZOFRAN [Concomitant]
     Active Substance: ONDANSETRON HYDROCHLORIDE
     Indication: Product used for unknown indication
  23. E.E.S. [Concomitant]
     Active Substance: ERYTHROMYCIN ETHYLSUCCINATE
     Indication: Product used for unknown indication
     Dosage: 1.7 MILLILITER, 3X/DAY (TID)

REACTIONS (12)
  - Vomiting [Not Recovered/Not Resolved]
  - Impaired gastric emptying [Not Recovered/Not Resolved]
  - Seizure [Recovered/Resolved]
  - Rhinovirus infection [Recovered/Resolved]
  - Enterovirus infection [Not Recovered/Not Resolved]
  - Bacteriuria [Recovered/Resolved]
  - Hypersomnia [Recovered/Resolved]
  - Pneumonia [Recovered/Resolved]
  - Aggression [Not Recovered/Not Resolved]
  - Vagal nerve stimulator implantation [Recovered/Resolved]
  - Drug ineffective [Unknown]
  - Wrong technique in product usage process [Unknown]

NARRATIVE: CASE EVENT DATE: 20240508
